FAERS Safety Report 10442331 (Version 2)
Quarter: 2014Q4

REPORT INFORMATION
  Report Type: Report from Study
  Country: JP (occurrence: JP)
  Receive Date: 20140909
  Receipt Date: 20141007
  Transmission Date: 20150528
  Serious: Yes (Other)
  Sender: FDA-Public Use
  Company Number: PHHY2014JP106089

PATIENT
  Age: 38 Year
  Sex: Male

DRUGS (24)
  1. CLOZARIL [Suspect]
     Active Substance: CLOZAPINE
     Dosage: 75 MG, DAILY
     Route: 048
     Dates: start: 20120412, end: 20120413
  2. CLOZARIL [Suspect]
     Active Substance: CLOZAPINE
     Dosage: 75 MG, DAILY
     Route: 048
     Dates: start: 20120919
  3. CLOZARIL [Suspect]
     Active Substance: CLOZAPINE
     Dosage: 100 MG, DAILY
     Route: 048
     Dates: start: 20120822, end: 20120918
  4. QUETIAPINE [Concomitant]
     Active Substance: QUETIAPINE
     Dosage: 600 MG, UNK
     Route: 048
  5. TAKEPRON [Concomitant]
     Active Substance: LANSOPRAZOLE
     Dosage: 30 MG, UNK
     Route: 048
  6. CLOZARIL [Suspect]
     Active Substance: CLOZAPINE
     Dosage: 25 MG, DAILY
     Route: 048
     Dates: start: 20120406, end: 20120408
  7. TAKEPRON [Concomitant]
     Active Substance: LANSOPRAZOLE
     Dosage: 15 MG, UNK
     Route: 048
     Dates: start: 20120706
  8. CLOZARIL [Suspect]
     Active Substance: CLOZAPINE
     Dosage: 100 MG, DAILY
     Route: 048
     Dates: start: 20120414, end: 20120415
  9. CLOZARIL [Suspect]
     Active Substance: CLOZAPINE
     Dosage: 200 MG, DAILY
     Route: 048
     Dates: start: 20120425, end: 20120516
  10. CLOZARIL [Suspect]
     Active Substance: CLOZAPINE
     Dosage: 175 MG, DAILY
     Route: 048
     Dates: start: 20120517, end: 20120522
  11. SIGMART [Concomitant]
     Active Substance: NICORANDIL
     Dosage: 15 MG, UNK
     Route: 048
     Dates: start: 20120405
  12. CLOZARIL [Suspect]
     Active Substance: CLOZAPINE
     Indication: SCHIZOPHRENIA, CATATONIC TYPE
     Dosage: 12.5 MG, DAILY
     Route: 048
     Dates: start: 20120405, end: 20120405
  13. CLOZARIL [Suspect]
     Active Substance: CLOZAPINE
     Dosage: 125 MG, DAILY
     Route: 048
     Dates: start: 20120416, end: 20120418
  14. CLOZARIL [Suspect]
     Active Substance: CLOZAPINE
     Dosage: 175 MG, DAILY
     Route: 048
     Dates: start: 20120422, end: 20120424
  15. CLOZARIL [Suspect]
     Active Substance: CLOZAPINE
     Dosage: 150 MG, DAILY
     Route: 048
     Dates: start: 20120523, end: 20120724
  16. QUETIAPINE [Concomitant]
     Active Substance: QUETIAPINE
     Dosage: 400 MG, UNK
     Route: 048
     Dates: end: 20120425
  17. DEPAKENE [Concomitant]
     Active Substance: VALPROIC ACID
     Indication: SCHIZOPHRENIA, CATATONIC TYPE
     Dosage: 2400 MG, UNK
     Route: 048
  18. QUETIAPINE [Concomitant]
     Active Substance: QUETIAPINE
     Dosage: 700 MG, UNK
     Route: 048
     Dates: start: 20120405
  19. DEPAKENE [Concomitant]
     Active Substance: VALPROIC ACID
     Dosage: 1200 MG, UNK
     Route: 048
  20. CLOZARIL [Suspect]
     Active Substance: CLOZAPINE
     Dosage: 50 MG, DAILY
     Route: 048
     Dates: start: 20120409, end: 20120411
  21. CLOZARIL [Suspect]
     Active Substance: CLOZAPINE
     Dosage: 150 MG, DAILY
     Route: 048
     Dates: start: 20120419, end: 20120421
  22. CLOZARIL [Suspect]
     Active Substance: CLOZAPINE
     Dosage: 125 MG, DAILY
     Route: 048
     Dates: start: 20120725, end: 20120821
  23. DEPAKENE [Concomitant]
     Active Substance: VALPROIC ACID
     Dosage: 1400 MG, UNK
     Route: 048
  24. DEPAKENE [Concomitant]
     Active Substance: VALPROIC ACID
     Dosage: 1000 MG, UNK
     Route: 048

REACTIONS (8)
  - Renal impairment [Recovered/Resolved]
  - White blood cell count increased [Recovering/Resolving]
  - Blood glucose increased [Recovered/Resolved]
  - Haemoglobin decreased [Unknown]
  - Haematocrit decreased [Unknown]
  - Platelet count decreased [Unknown]
  - Eosinophil count increased [Unknown]
  - Red blood cell count decreased [Unknown]

NARRATIVE: CASE EVENT DATE: 20120425
